FAERS Safety Report 10405226 (Version 3)
Quarter: 2019Q4

REPORT INFORMATION
  Report Type: Report from Study
  Country: HU (occurrence: DE)
  Receive Date: 20140825
  Receipt Date: 20191010
  Transmission Date: 20200122
  Serious: Yes (Death, Other)
  Sender: FDA-Public Use
  Company Number: DE-BEH-200610597

PATIENT
  Age: 70 Year
  Sex: Male

DRUGS (6)
  1. BERIPLEX P/N [Suspect]
     Active Substance: COAGULATION FACTOR IX HUMAN\COAGULATION FACTOR VII HUMAN\COAGULATION FACTOR X HUMAN\PROTEIN C\PROTEIN S HUMAN\PROTHROMBIN
     Indication: GASTROINTESTINAL HAEMORRHAGE
     Dosage: DAILY DOSE QUANTITY: 3500, DAILY DOSE UNIT: IU
     Route: 042
     Dates: start: 20060822, end: 20060822
  2. BERIPLEX P/N [Suspect]
     Active Substance: COAGULATION FACTOR IX HUMAN\COAGULATION FACTOR VII HUMAN\COAGULATION FACTOR X HUMAN\PROTEIN C\PROTEIN S HUMAN\PROTHROMBIN
     Dosage: DAILY DOSE QUANTITY: 1500, DAILY DOSE UNIT: IU
     Route: 042
     Dates: start: 20060825, end: 20060825
  3. VITAMIN K [Concomitant]
     Active Substance: PHYTONADIONE
     Dosage: 10 MILLIGRAM
     Route: 042
  4. BERIPLEX P/N [Suspect]
     Active Substance: COAGULATION FACTOR IX HUMAN\COAGULATION FACTOR VII HUMAN\COAGULATION FACTOR X HUMAN\PROTEIN C\PROTEIN S HUMAN\PROTHROMBIN
     Indication: GASTROINTESTINAL HAEMORRHAGE
     Dosage: DAILY DOSE QUANTITY: 3500, DAILY DOSE UNIT: IU
     Route: 042
     Dates: start: 20060822, end: 20060822
  5. BERIPLEX P/N [Suspect]
     Active Substance: COAGULATION FACTOR IX HUMAN\COAGULATION FACTOR VII HUMAN\COAGULATION FACTOR X HUMAN\PROTEIN C\PROTEIN S HUMAN\PROTHROMBIN
     Dosage: DAILY DOSE QUANTITY: 1500, DAILY DOSE UNIT: IU
     Route: 042
     Dates: start: 20060825, end: 20060825
  6. VITAMIN K [Concomitant]
     Active Substance: PHYTONADIONE
     Dosage: DAILY TREATMENT

REACTIONS (3)
  - Drug ineffective [Fatal]
  - Dyspnoea [Fatal]
  - Pulmonary embolism [Fatal]

NARRATIVE: CASE EVENT DATE: 20060826
